FAERS Safety Report 7208944-2 (Version None)
Quarter: 2010Q4

REPORT INFORMATION
  Report Type: 
  Country: None (occurrence: None)
  Receive Date: 20101222
  Receipt Date: 20101206
  Transmission Date: 20110411
  Serious: Yes (Other)
  Sender: FDA-Public Use
  Company Number: ALA_00738_2010

PATIENT
  Sex: Male
  Weight: 120.2032 kg

DRUGS (8)
  1. REGLAN [Suspect]
     Indication: BARRETT'S OESOPHAGUS
     Dosage: (10 MG TID ORAL)
     Route: 048
     Dates: start: 19980101, end: 20080101
  2. REGLAN [Suspect]
     Indication: GASTROOESOPHAGEAL REFLUX DISEASE
     Dosage: (10 MG TID ORAL)
     Route: 048
     Dates: start: 19980101, end: 20080101
  3. PROPULSID [Concomitant]
  4. TAGAMET /00397401/ [Concomitant]
  5. BENADRYL [Concomitant]
  6. PRILOSEC [Concomitant]
  7. ALBUTEROL [Concomitant]
  8. IRON [Concomitant]

REACTIONS (14)
  - ASTHMA [None]
  - DYSKINESIA [None]
  - DYSPHAGIA [None]
  - ECONOMIC PROBLEM [None]
  - EMOTIONAL DISORDER [None]
  - EROSIVE OESOPHAGITIS [None]
  - EXTRAPYRAMIDAL DISORDER [None]
  - GASTRIC POLYPS [None]
  - HAEMATEMESIS [None]
  - INJURY [None]
  - MUSCLE TWITCHING [None]
  - OESOPHAGEAL STENOSIS [None]
  - OESOPHAGITIS ULCERATIVE [None]
  - RESTLESS LEGS SYNDROME [None]
